FAERS Safety Report 12050979 (Version 1)
Quarter: 2016Q1

REPORT INFORMATION
  Report Type: Report from Study
  Country: US (occurrence: US)
  Receive Date: 20160208
  Receipt Date: 20160208
  Transmission Date: 20160526
  Serious: No
  Sender: FDA-Public Use
  Company Number: US-ABBVIE-15P-163-1393218-00

PATIENT
  Sex: Male

DRUGS (11)
  1. HUMIRA [Suspect]
     Active Substance: ADALIMUMAB
     Indication: COLITIS ULCERATIVE
     Route: 058
     Dates: start: 20130708, end: 20140204
  2. PROPOFOL. [Concomitant]
     Active Substance: PROPOFOL
     Indication: SEDATIVE THERAPY
     Route: 040
     Dates: start: 20140218, end: 20140218
  3. LIDOCAINE. [Concomitant]
     Active Substance: LIDOCAINE
     Indication: SEDATIVE THERAPY
     Route: 040
     Dates: start: 20130708, end: 20130708
  4. METHOTREXATE [Concomitant]
     Active Substance: METHOTREXATE
     Route: 058
     Dates: start: 20140218
  5. HUMIRA [Suspect]
     Active Substance: ADALIMUMAB
     Route: 058
     Dates: start: 20140218
  6. MOVIPREP [Concomitant]
     Active Substance: ASCORBIC ACID\POLYETHYLENE GLYCOL 3350\POTASSIUM CHLORIDE\SODIUM ASCORBATE\SODIUM CHLORIDE\SODIUM SULFATE
     Indication: BOWEL PREPARATION
     Route: 048
     Dates: start: 20130707, end: 20130707
  7. PROPOFOL. [Concomitant]
     Active Substance: PROPOFOL
     Indication: BOWEL PREPARATION
     Route: 040
     Dates: start: 20130708, end: 20130708
  8. LIALDA [Concomitant]
     Active Substance: MESALAMINE
     Indication: PRODUCT USED FOR UNKNOWN INDICATION
     Route: 048
     Dates: start: 20140630
  9. METHOTREXATE [Concomitant]
     Active Substance: METHOTREXATE
     Indication: PRODUCT USED FOR UNKNOWN INDICATION
     Route: 048
     Dates: start: 20130923, end: 20140211
  10. FLEET ENEMA [Concomitant]
     Active Substance: SODIUM PHOSPHATE, DIBASIC\SODIUM PHOSPHATE, MONOBASIC
     Indication: BOWEL PREPARATION
     Route: 054
     Dates: start: 20140218, end: 20140218
  11. LIDOCAINE. [Concomitant]
     Active Substance: LIDOCAINE
     Indication: SEDATIVE THERAPY
     Route: 040
     Dates: start: 20140218, end: 20140218

REACTIONS (1)
  - Colitis ulcerative [Recovered/Resolved]

NARRATIVE: CASE EVENT DATE: 20130923
